FAERS Safety Report 24431810 (Version 2)
Quarter: 2024Q4

REPORT INFORMATION
  Report Type: Report from Study
  Country: PE (occurrence: PE)
  Receive Date: 20241014
  Receipt Date: 20241016
  Transmission Date: 20250115
  Serious: Yes (Disabling)
  Sender: ROCHE
  Company Number: PE-ROCHE-10000101731

PATIENT
  Age: 71 Year
  Sex: Female
  Weight: 64 kg

DRUGS (1)
  1. ACTEMRA [Suspect]
     Active Substance: TOCILIZUMAB
     Indication: Rheumatoid arthritis
     Dosage: 1 WEEKLY AMPOULE
     Route: 058
     Dates: start: 20190724

REACTIONS (5)
  - Gait inability [Unknown]
  - Osteoporosis [Unknown]
  - Fall [Unknown]
  - Shoulder fracture [Recovering/Resolving]
  - Product dose omission issue [Unknown]
